FAERS Safety Report 6626158-1 (Version None)
Quarter: 2010Q1

REPORT INFORMATION
  Report Type: 
  Country: None (occurrence: None)
  Receive Date: 20100309
  Receipt Date: 20100309
  Transmission Date: 20100710
  Serious: Yes (Hospitalization)
  Sender: FDA-Public Use
  Company Number: None

PATIENT
  Age: 80 Year
  Sex: Male
  Weight: 85.45 kg

DRUGS (2)
  1. PACLITAXEL [Suspect]
     Dosage: 95 MG ONCE IV
     Route: 042
     Dates: start: 20090814, end: 20090814
  2. CARBOPLATIN [Suspect]
     Dosage: 166 MG ONCE IV
     Route: 042
     Dates: start: 20090814, end: 20090814

REACTIONS (4)
  - FATIGUE [None]
  - HAEMOPTYSIS [None]
  - TACHYCARDIA [None]
  - UNEVALUABLE EVENT [None]
